FAERS Safety Report 13866914 (Version 2)
Quarter: 2017Q3

REPORT INFORMATION
  Report Type: Report from Study
  Country: CA (occurrence: CA)
  Receive Date: 20170814
  Receipt Date: 20170901
  Transmission Date: 20171127
  Serious: Yes (Death)
  Sender: FDA-Public Use
  Company Number: CA-HLSUS-2017-CA-000886

PATIENT
  Age: 49 Year
  Sex: Female
  Weight: 100 kg

DRUGS (1)
  1. CLOZARIL [Suspect]
     Active Substance: CLOZAPINE
     Indication: SCHIZOPHRENIA
     Dosage: 100 MG
     Route: 048
     Dates: start: 19991203, end: 20170615

REACTIONS (2)
  - Death [Fatal]
  - Lung neoplasm [Unknown]

NARRATIVE: CASE EVENT DATE: 20170615
